FAERS Safety Report 6394977-5 (Version None)
Quarter: 2009Q4

REPORT INFORMATION
  Report Type: 
  Country: None (occurrence: None)
  Receive Date: 20091009
  Receipt Date: 20091001
  Transmission Date: 20100525
  Serious: Yes (Life-Threatening, Hospitalization)
  Sender: FDA-Public Use
  Company Number: ES-PFIZER INC-2009242142

PATIENT
  Age: 23 Year

DRUGS (3)
  1. NORVASC [Suspect]
     Dosage: 50TABS X10MG
     Dates: start: 20090101, end: 20090101
  2. CLORAZEPATE DIPOTASSIUM [Concomitant]
     Dosage: 50 MG, UNK
  3. LORAZEPAM [Concomitant]
     Dosage: 10 MG, UNK

REACTIONS (4)
  - CARDIAC FAILURE [None]
  - INTENTIONAL OVERDOSE [None]
  - RENAL FAILURE [None]
  - SUICIDE ATTEMPT [None]
